FAERS Safety Report 18559207 (Version 1)
Quarter: 2020Q4

REPORT INFORMATION
  Report Type: Spontaneous
  Country: US (occurrence: US)
  Receive Date: 20201127
  Receipt Date: 20201127
  Transmission Date: 20210114
  Serious: No
  Sender: FDA-Public Use
  Company Number: None

PATIENT
  Age: 68 Year
  Sex: Female

DRUGS (21)
  1. BASAGLAR [Concomitant]
     Active Substance: INSULIN GLARGINE
  2. BUMEX [Concomitant]
     Active Substance: BUMETANIDE
  3. CYCLOBENZAPRINE. [Concomitant]
     Active Substance: CYCLOBENZAPRINE
  4. ALBUTEROL. [Concomitant]
     Active Substance: ALBUTEROL
  5. BUPROPION. [Concomitant]
     Active Substance: BUPROPION
  6. METOPROLOL. [Concomitant]
     Active Substance: METOPROLOL
  7. ADVAIR HFA [Concomitant]
     Active Substance: FLUTICASONE PROPIONATE\SALMETEROL XINAFOATE
  8. COMBIVENT [Concomitant]
     Active Substance: ALBUTEROL SULFATE\IPRATROPIUM BROMIDE
  9. LORATADINE. [Concomitant]
     Active Substance: LORATADINE
  10. ALLOPURINOL. [Concomitant]
     Active Substance: ALLOPURINOL
  11. AMLODIPINE [Concomitant]
     Active Substance: AMLODIPINE BESYLATE
  12. PROCHLORPERAZINE. [Concomitant]
     Active Substance: PROCHLORPERAZINE
  13. PRAVASTATIN. [Concomitant]
     Active Substance: PRAVASTATIN
  14. SINGULAIR [Concomitant]
     Active Substance: MONTELUKAST SODIUM
  15. OXYCODONE [Concomitant]
     Active Substance: OXYCODONE
  16. POTASSIUM [Concomitant]
     Active Substance: POTASSIUM
  17. SUTENT [Suspect]
     Active Substance: SUNITINIB MALATE
     Indication: RENAL CANCER
     Route: 048
     Dates: start: 20201118
  18. LEVOTHYROXINE. [Concomitant]
     Active Substance: LEVOTHYROXINE
  19. MULTIVITAMIN [Concomitant]
     Active Substance: VITAMINS
  20. FLUTICASONE. [Concomitant]
     Active Substance: FLUTICASONE
  21. LOMOTIL [Concomitant]
     Active Substance: ATROPINE SULFATE\DIPHENOXYLATE HYDROCHLORIDE

REACTIONS (3)
  - Diarrhoea [None]
  - Abdominal discomfort [None]
  - Fatigue [None]

NARRATIVE: CASE EVENT DATE: 20201118
